FAERS Safety Report 6520055-8 (Version None)
Quarter: 2009Q4

REPORT INFORMATION
  Report Type: 
  Country: None (occurrence: None)
  Receive Date: 20091229
  Receipt Date: 20091221
  Transmission Date: 20100525
  Serious: Yes (Death)
  Sender: FDA-Public Use
  Company Number: US-ROCHE-676301

PATIENT
  Sex: Female
  Weight: 83.5 kg

DRUGS (1)
  1. CAPECITABINE [Suspect]
     Indication: BREAST CANCER
     Dosage: 3 TABLETS AM AND PM
     Route: 048
     Dates: start: 20090721, end: 20091123

REACTIONS (1)
  - DEATH [None]
